FAERS Safety Report 14803162 (Version 2)
Quarter: 2019Q2

REPORT INFORMATION
  Report Type: Spontaneous
  Country: US (occurrence: US)
  Receive Date: 20180425
  Receipt Date: 20190418
  Transmission Date: 20190711
  Serious: Yes (Other)
  Sender: FDA-Public Use
  Company Number: US-GLENMARK PHARMACEUTICALS-2017GMK029872

PATIENT

DRUGS (2)
  1. HCTZ [Concomitant]
     Active Substance: HYDROCHLOROTHIAZIDE
     Indication: BLOOD PRESSURE ABNORMAL
     Dosage: UNK
     Route: 065
  2. IMIQUIMOD. [Suspect]
     Active Substance: IMIQUIMOD
     Indication: ANOGENITAL WARTS
     Dosage: UNK, 3 TIMES A WEEK ON INNER LABIA
     Route: 061

REACTIONS (3)
  - Drug ineffective [Unknown]
  - Genital haemorrhage [Recovering/Resolving]
  - Genital erythema [Recovering/Resolving]

NARRATIVE: CASE EVENT DATE: 2017
